FAERS Safety Report 12371245 (Version 1)
Quarter: 2016Q2

REPORT INFORMATION
  Report Type: Spontaneous
  Country: US (occurrence: US)
  Receive Date: 20160516
  Receipt Date: 20160516
  Transmission Date: 20160815
  Serious: No
  Sender: FDA-Public Use
  Company Number: US-PFIZER INC-2016251493

PATIENT
  Age: 66 Year
  Sex: Female
  Weight: 103.4 kg

DRUGS (9)
  1. VITAMIN D3 [Concomitant]
     Active Substance: CHOLECALCIFEROL
     Indication: NUTRITIONAL SUPPLEMENTATION
     Dosage: 1000 UNITS CAPSULE DAILY
     Route: 048
     Dates: start: 2006
  2. DULOXETINE DR [Concomitant]
     Active Substance: DULOXETINE
     Indication: DEPRESSION
     Dosage: 30 MG, DAILY (1 CAPSULE PER DAY)
     Route: 048
     Dates: start: 2010
  3. XELJANZ [Suspect]
     Active Substance: TOFACITINIB CITRATE
     Indication: RHEUMATOID ARTHRITIS
     Dosage: 5 MG TABLET, 1 TABLET IN THE MORNING AND 1 TABLET 12 HOURS LATER
     Route: 048
     Dates: end: 20160303
  4. HYDROCHLOROTHIAZIDE. [Concomitant]
     Active Substance: HYDROCHLOROTHIAZIDE
     Indication: SWELLING
     Dosage: 12.5 MG, AS NEEDED (1 TABLET DAILY AS NEEDED)
     Route: 048
  5. POTASSIUM CHLORIDE ER [Concomitant]
     Active Substance: POTASSIUM CHLORIDE
     Indication: MUSCLE SPASMS
     Dosage: 20 MEQ 1 TABLET TWICE A DAY
     Route: 048
  6. METHOTREXATE [Concomitant]
     Active Substance: METHOTREXATE
     Indication: RHEUMATOID ARTHRITIS
     Dosage: 2.5 MG TABLETS, 8 TABLETS EVERY WEDNESDAY
     Route: 048
  7. FOLIC ACID. [Concomitant]
     Active Substance: FOLIC ACID
     Indication: NUTRITIONAL SUPPLEMENTATION
     Dosage: 2 MG, DAILY (1 MG TABLET, 2 TABLETS EVERY DAY EXCEPT THE DAY SHE TAKES METHOTREXATE)
     Route: 048
  8. HYDROCHLOROTHIAZIDE. [Concomitant]
     Active Substance: HYDROCHLOROTHIAZIDE
     Indication: FLUID RETENTION
  9. CALCIUM+D [Concomitant]
     Indication: NUTRITIONAL SUPPLEMENTATION
     Dosage: [CALCIUM 600MG]/[COLECALCIFEROL 800IU] TABLET, DAILY
     Route: 048
     Dates: start: 2006

REACTIONS (4)
  - Ageusia [Not Recovered/Not Resolved]
  - Bronchitis [Not Recovered/Not Resolved]
  - Anosmia [Not Recovered/Not Resolved]
  - Sinusitis [Not Recovered/Not Resolved]

NARRATIVE: CASE EVENT DATE: 201603
